FAERS Safety Report 5642973-5 (Version None)
Quarter: 2008Q1

REPORT INFORMATION
  Report Type: 
  Country: None (occurrence: None)
  Receive Date: 20080228
  Receipt Date: 20080220
  Transmission Date: 20080703
  Serious: Yes (Other)
  Sender: FDA-Public Use
  Company Number: A0704599A

PATIENT
  Age: 64 Year
  Sex: Male
  Weight: 66.4 kg

DRUGS (9)
  1. AVODART [Suspect]
     Indication: BENIGN PROSTATIC HYPERPLASIA
     Dosage: .5MG PER DAY
     Route: 048
     Dates: start: 20070701, end: 20080118
  2. KALETRA [Concomitant]
  3. RITONAVIR [Concomitant]
  4. TRUVADA [Concomitant]
  5. ACYCLOVIR [Concomitant]
  6. LIPITOR [Concomitant]
  7. BACTRIM [Concomitant]
  8. PEPCID [Concomitant]
  9. ZYRTEC [Concomitant]

REACTIONS (3)
  - MUSCLE SPASMS [None]
  - NIGHT SWEATS [None]
  - PERONEAL NERVE PALSY [None]
